FAERS Safety Report 4415521-5 (Version None)
Quarter: 2004Q2

REPORT INFORMATION
  Report Type: 
  Country: None (occurrence: None)
  Receive Date: 20040621
  Receipt Date: 20031201
  Transmission Date: 20050107
  Serious: Yes (Death)
  Sender: FDA-Public Use
  Company Number: USA-2003-0011708

PATIENT
  Age: 32 Year
  Sex: Male

DRUGS (10)
  1. OXYCODONE HCL [Suspect]
  2. HYDROCODONE BITARTRATE (SIMILAR TO IND 59,175) (HYDROCODONE BITARTRATE [Suspect]
  3. OLANZAPINE [Suspect]
  4. ALPRAZOLAM [Suspect]
  5. OXYMORPHONE HYDROCHLORIDE [Suspect]
  6. MEPERIDONE HYDROCHLORIDE (PETHIDINE HYDROCHLORIDE) [Suspect]
  7. CANNABIS (CANNABIS) [Suspect]
  8. QUINIDINE (QUINIDINE) [Suspect]
  9. ATENOLOL [Suspect]
  10. QUININE (QUININE) [Suspect]

REACTIONS (1)
  - MULTIPLE DRUG OVERDOSE ACCIDENTAL [None]
